FAERS Safety Report 25818379 (Version 2)
Quarter: 2025Q4

REPORT INFORMATION
  Report Type: Spontaneous
  Country: EU (occurrence: EU)
  Receive Date: 20250918
  Receipt Date: 20251006
  Transmission Date: 20260118
  Serious: Yes (Hospitalization)
  Sender: SANDOZ
  Company Number: None

PATIENT
  Age: 41 Year
  Sex: Female

DRUGS (1)
  1. TYRUKO [Suspect]
     Active Substance: NATALIZUMAB-SZTN
     Indication: Relapsing-remitting multiple sclerosis
     Dosage: 300 MG EVERY SIX WEEKS
     Route: 042
     Dates: start: 20250909, end: 20250909

REACTIONS (6)
  - Hyperpyrexia [Recovering/Resolving]
  - Full blood count abnormal [Unknown]
  - Chills [Recovering/Resolving]
  - Vomiting [Recovering/Resolving]
  - Headache [Recovering/Resolving]
  - Nausea [Recovering/Resolving]

NARRATIVE: CASE EVENT DATE: 20250909
